FAERS Safety Report 5517598-2 (Version None)
Quarter: 2007Q4

REPORT INFORMATION
  Report Type: 
  Country: None (occurrence: None)
  Receive Date: 20071114
  Receipt Date: 20071108
  Transmission Date: 20080405
  Serious: Yes (Disabling)
  Sender: FDA-Public Use
  Company Number: JP-SANOFI-SYNTHELABO-F01200701448

PATIENT
  Sex: Male

DRUGS (4)
  1. FLUOROURACIL [Suspect]
     Route: 042
     Dates: end: 20071025
  2. CALCIUM LEVOFOLINATE [Suspect]
     Route: 042
     Dates: start: 20071023, end: 20071024
  3. OXALIPLATIN [Suspect]
     Indication: COLON CANCER METASTATIC
     Route: 042
     Dates: start: 20071023, end: 20071023
  4. BEVACIZUMAB [Suspect]
     Route: 042
     Dates: start: 20071023, end: 20071023

REACTIONS (1)
  - BRAIN STEM INFARCTION [None]
